FAERS Safety Report 9967601 (Version 1)
Quarter: 2014Q1

REPORT INFORMATION
  Report Type: Report from Study
  Country: US (occurrence: US)
  Receive Date: 20140305
  Receipt Date: 20140305
  Transmission Date: 20141002
  Serious: No
  Sender: FDA-Public Use
  Company Number: US-ABBVIE-13P-163-1138822-00

PATIENT
  Age: 33 Year
  Sex: Female

DRUGS (8)
  1. HUMIRA [Suspect]
     Indication: CROHN^S DISEASE
     Dates: start: 20130531
  2. BENTYL [Concomitant]
     Indication: ABDOMINAL PAIN UPPER
     Dosage: BEFORE EACH MEAL AND BEFORE BEDTIME
  3. IRON [Concomitant]
     Indication: ANAEMIA
  4. KLOR-CON [Concomitant]
     Indication: HYPOKALAEMIA
  5. FOLIC ACID [Concomitant]
     Indication: PRODUCT USED FOR UNKNOWN INDICATION
  6. MULTIVITAMIN [Concomitant]
     Indication: PRODUCT USED FOR UNKNOWN INDICATION
  7. DEXILANT [Concomitant]
     Indication: GASTROOESOPHAGEAL REFLUX DISEASE
  8. VITAMIN B12 [Concomitant]
     Indication: VITAMIN B12 DEFICIENCY
     Dosage: ON THE 16TH OF EACH MONTH

REACTIONS (1)
  - Injection site erythema [Not Recovered/Not Resolved]
